FAERS Safety Report 5392362-6 (Version None)
Quarter: 2007Q3

REPORT INFORMATION
  Report Type: 
  Country: None (occurrence: None)
  Receive Date: 20070720
  Receipt Date: 20070716
  Transmission Date: 20080115
  Serious: Yes (Death)
  Sender: FDA-Public Use
  Company Number: A0651997A

PATIENT
  Age: 35 Year
  Sex: Female
  Weight: 86.4 kg

DRUGS (2)
  1. TYKERB [Suspect]
     Dates: start: 20070101
  2. HERCEPTIN [Suspect]
     Dates: start: 20070101

REACTIONS (1)
  - DEATH [None]
